FAERS Safety Report 7980466-0 (Version None)
Quarter: 2011Q4

REPORT INFORMATION
  Report Type: 
  Country: None (occurrence: None)
  Receive Date: 20111214
  Receipt Date: 20111207
  Transmission Date: 20120403
  Serious: Yes (Death, Life-Threatening, Hospitalization, Disabling, Other)
  Sender: FDA-Public Use
  Company Number: US-GLAXOSMITHKLINE-A0957123A

PATIENT
  Age: 10 Year
  Sex: Male

DRUGS (8)
  1. XOPENEX [Concomitant]
  2. SINGULAIR [Concomitant]
  3. MIRALAX [Concomitant]
  4. ALLEGRA [Concomitant]
  5. AUGMENTIN [Concomitant]
     Indication: EAR INFECTION
     Dosage: 1TSP TWICE PER DAY
     Route: 048
     Dates: start: 20111104
  6. ADVAIR DISKUS 100/50 [Suspect]
     Indication: ASTHMA
     Dosage: 2PUFF TWICE PER DAY
     Route: 055
     Dates: start: 20110414, end: 20111110
  7. VIGAMOX [Concomitant]
  8. ALBUTEROL [Suspect]
     Route: 055

REACTIONS (7)
  - ADVERSE DRUG REACTION [None]
  - DEATH [None]
  - ASTHMA [None]
  - DRUG INEFFECTIVE [None]
  - CIRCULATORY COLLAPSE [None]
  - DYSPNOEA [None]
  - MALAISE [None]
